FAERS Safety Report 25192099 (Version 1)
Quarter: 2025Q2

REPORT INFORMATION
  Report Type: Spontaneous
  Country: GB (occurrence: GB)
  Receive Date: 20250414
  Receipt Date: 20250414
  Transmission Date: 20250716
  Serious: Yes (Other)
  Sender: MYLAN
  Company Number: GB-MHRA-TPP4873582C8297127YC1744130152281

PATIENT
  Age: 32 Year
  Sex: Female
  Weight: 46 kg

DRUGS (2)
  1. SUMATRIPTAN [Suspect]
     Active Substance: SUMATRIPTAN
     Indication: Migraine
     Dosage: 50 MILLIGRAM, QD (TAKE ONE TABLET FOR MIGRAINE ATTACK, REPEAT AFT)
     Dates: start: 20250401
  2. ASPIRIN [Concomitant]
     Active Substance: ASPIRIN
     Indication: Ill-defined disorder
     Dosage: 900 MILLIGRAM, QD (TAKE 3 TABLETS (900MG) AS SINGLE DOSE)
     Dates: start: 20230511

REACTIONS (1)
  - Angioedema [Recovered/Resolved]

NARRATIVE: CASE EVENT DATE: 20250401
